FAERS Safety Report 9404672 (Version 3)
Quarter: 2013Q3

REPORT INFORMATION
  Report Type: Spontaneous
  Country: US (occurrence: None)
  Receive Date: 20130904
  Receipt Date: 20130924
  Transmission Date: 20140515
  Serious: Yes (Other)
  Sender: FDA-Public Use
  Company Number: 2013036812

PATIENT
  Age: 19 Year
  Sex: Female

DRUGS (2)
  1. IVIG (IMMUNE GLOBULIN INTRAVENOUS (HUMAN)) [Suspect]
     Indication: SELECTIVE IGA IMMUNODEFICIENCY
  2. IVIG (IMMUNE GLOBULIN INTRAVENOUS (HUMAN)) [Suspect]
     Indication: IMMUNODEFICIENCY COMMON VARIABLE

REACTIONS (1)
  - Anaphylactic reaction [None]
